FAERS Safety Report 18755387 (Version 6)
Quarter: 2025Q2

REPORT INFORMATION
  Report Type: Report from Study
  Country: CA (occurrence: CA)
  Receive Date: 20210119
  Receipt Date: 20250609
  Transmission Date: 20250717
  Serious: Yes (Other)
  Sender: TAKEDA
  Company Number: CA-TAKEDA-2021TUS003120

PATIENT
  Age: 44 Year
  Sex: Female

DRUGS (16)
  1. VEDOLIZUMAB [Suspect]
     Active Substance: VEDOLIZUMAB
     Indication: Colitis ulcerative
  2. VEDOLIZUMAB [Suspect]
     Active Substance: VEDOLIZUMAB
     Dosage: 300 MILLIGRAM, Q4WEEKS
     Dates: start: 20210222
  3. VEDOLIZUMAB [Suspect]
     Active Substance: VEDOLIZUMAB
     Dosage: 300 MILLIGRAM, Q4WEEKS
  4. VEDOLIZUMAB [Suspect]
     Active Substance: VEDOLIZUMAB
     Dosage: 300 MILLIGRAM, Q4WEEKS
  5. VEDOLIZUMAB [Suspect]
     Active Substance: VEDOLIZUMAB
     Dosage: 300 MILLIGRAM, Q4WEEKS
  6. PANTOPRAZOLE MAGNESIUM [Suspect]
     Active Substance: PANTOPRAZOLE MAGNESIUM
     Indication: Product used for unknown indication
     Dates: start: 20230607, end: 20240131
  7. ATENOLOL [Concomitant]
     Active Substance: ATENOLOL
  8. ATIVAN [Concomitant]
     Active Substance: LORAZEPAM
  9. IMURAN [Concomitant]
     Active Substance: AZATHIOPRINE
  10. ENTOCORT [Concomitant]
     Active Substance: BUDESONIDE
  11. ASACOL [Concomitant]
     Active Substance: MESALAMINE
  12. Salofalk [Concomitant]
  13. ESCITALOPRAM [Concomitant]
     Active Substance: ESCITALOPRAM OXALATE
  14. ESTROGENS [Concomitant]
     Active Substance: ESTROGENS
  15. PROGESTERONE [Concomitant]
     Active Substance: PROGESTERONE
  16. VAGIFEM [Concomitant]
     Active Substance: ESTRADIOL

REACTIONS (9)
  - Colitis ulcerative [Unknown]
  - Gastritis [Recovered/Resolved]
  - Abdominal pain [Recovered/Resolved]
  - Therapeutic reaction time decreased [Recovering/Resolving]
  - Constipation [Recovering/Resolving]
  - Off label use [Unknown]
  - Abdominal discomfort [Not Recovered/Not Resolved]
  - Abdominal distension [Recovering/Resolving]
  - Flatulence [Not Recovered/Not Resolved]

NARRATIVE: CASE EVENT DATE: 20210222
